FAERS Safety Report 20006178 (Version 5)
Quarter: 2022Q1

REPORT INFORMATION
  Report Type: Report from Study
  Country: None (occurrence: US)
  Receive Date: 20211028
  Receipt Date: 20220127
  Transmission Date: 20220423
  Serious: Yes (Other)
  Sender: FDA-Public Use
  Company Number: US-AKCEA THERAPEUTICS, INC.-2021IS001789

PATIENT
  Age: 76 Year
  Sex: Male

DRUGS (3)
  1. TEGSEDI [Suspect]
     Active Substance: INOTERSEN SODIUM
     Indication: Hereditary neuropathic amyloidosis
     Route: 058
     Dates: start: 20190726, end: 20210923
  2. DEVICE [Suspect]
     Active Substance: DEVICE
  3. TEGSEDI [Suspect]
     Active Substance: INOTERSEN SODIUM
     Route: 058
     Dates: start: 20190729

REACTIONS (6)
  - Glomerulonephritis [Unknown]
  - Blood creatinine increased [Unknown]
  - Glomerular filtration rate decreased [Unknown]
  - Platelet count decreased [Unknown]
  - Protein urine present [Unknown]
  - Renal function test abnormal [Unknown]

NARRATIVE: CASE EVENT DATE: 20211007
